FAERS Safety Report 11338263 (Version 1)
Quarter: 2015Q3

REPORT INFORMATION
  Report Type: Spontaneous
  Country: US (occurrence: US)
  Receive Date: 20150803
  Receipt Date: 20150803
  Transmission Date: 20151125
  Serious: No
  Sender: FDA-Public Use
  Company Number: US-ELI_LILLY_AND_COMPANY-US201005005598

PATIENT
  Sex: Male

DRUGS (3)
  1. ALCOHOL. [Concomitant]
     Active Substance: ALCOHOL
  2. ZYPREXA [Suspect]
     Active Substance: OLANZAPINE
     Dosage: 40 MG, DAILY (1/D)
  3. GEODON [Concomitant]
     Active Substance: ZIPRASIDONE HYDROCHLORIDE\ZIPRASIDONE MESYLATE

REACTIONS (5)
  - Tremor [Unknown]
  - Dry mouth [Unknown]
  - Alcohol poisoning [Unknown]
  - Prescribed overdose [Unknown]
  - Schizophrenia [Unknown]
